FAERS Safety Report 4854434-1 (Version None)
Quarter: 2005Q4

REPORT INFORMATION
  Report Type: 
  Country: None (occurrence: None)
  Receive Date: 20051213
  Receipt Date: 20051121
  Transmission Date: 20060501
  Serious: Yes (Other)
  Sender: FDA-Public Use
  Company Number: DE-2005-024807

PATIENT
  Age: 47 Year
  Sex: Female

DRUGS (2)
  1. MIRENA [Suspect]
     Indication: MENORRHAGIA
     Dosage: 20 UG/DAU, INTRA-UTERINE
     Route: 015
     Dates: start: 20030101
  2. ESTROGENS [Concomitant]

REACTIONS (3)
  - AMENORRHOEA [None]
  - FOCAL NODULAR HYPERPLASIA [None]
  - HAEMANGIOMA OF LIVER [None]
